FAERS Safety Report 5374783-0 (Version None)
Quarter: 2007Q2

REPORT INFORMATION
  Report Type: 
  Country: None (occurrence: None)
  Receive Date: 20070629
  Receipt Date: 20070619
  Transmission Date: 20071010
  Serious: Yes (Other)
  Sender: FDA-Public Use
  Company Number: JP-ROCHE-494129

PATIENT
  Age: 24 Month
  Sex: Female
  Weight: 14 kg

DRUGS (1)
  1. ROCEPHIN [Suspect]
     Indication: SEPSIS
     Route: 041
     Dates: start: 20070309, end: 20070403

REACTIONS (1)
  - CHOLELITHIASIS [None]
